FAERS Safety Report 24940015 (Version 1)
Quarter: 2025Q1

REPORT INFORMATION
  Report Type: Spontaneous
  Country: FI (occurrence: FI)
  Receive Date: 20250207
  Receipt Date: 20250207
  Transmission Date: 20250409
  Serious: Yes (Hospitalization, Disabling, Other)
  Sender: CELLTRION
  Company Number: FI-ROCHE-10000009220

PATIENT

DRUGS (4)
  1. RITUXIMAB [Suspect]
     Active Substance: RITUXIMAB
     Indication: Product used for unknown indication
     Route: 065
  2. TOCILIZUMAB [Suspect]
     Active Substance: TOCILIZUMAB
     Indication: Castleman^s disease
     Dosage: THE LAST INFUSION WAS GIVEN ON 30/OCT/2020
     Route: 041
  3. CLINDAMYCIN HYDROCHLORIDE [Concomitant]
     Active Substance: CLINDAMYCIN HYDROCHLORIDE
  4. CORTISONE [Concomitant]
     Active Substance: CORTISONE

REACTIONS (10)
  - Autoimmune disorder [Unknown]
  - Infective myositis [Unknown]
  - Muscle abscess [Unknown]
  - Arthritis bacterial [Unknown]
  - Musculoskeletal disorder [Unknown]
  - Herpes zoster [Unknown]
  - Pain [Unknown]
  - Off label use [Unknown]
  - Off label use [Unknown]
  - Off label use [Unknown]

NARRATIVE: CASE EVENT DATE: 20201108
